FAERS Safety Report 5591429-7 (Version None)
Quarter: 2008Q1

REPORT INFORMATION
  Report Type: 
  Country: None (occurrence: None)
  Receive Date: 20080111
  Receipt Date: 20080104
  Transmission Date: 20080703
  Serious: Yes (Other)
  Sender: FDA-Public Use
  Company Number: 2008000579

PATIENT
  Sex: Male
  Weight: 72.5755 kg

DRUGS (1)
  1. SUDAFED 12 HOUR [Suspect]
     Indication: SINUS CONGESTION
     Dosage: ONE TABLET DAILY (1 IN 1 D), ORAL
     Route: 048
     Dates: start: 20071220

REACTIONS (2)
  - BLINDNESS [None]
  - OCULAR VASCULAR DISORDER [None]
